FAERS Safety Report 16154999 (Version 2)
Quarter: 2019Q2

REPORT INFORMATION
  Report Type: Spontaneous
  Country: IN (occurrence: IN)
  Receive Date: 20190403
  Receipt Date: 20190412
  Transmission Date: 20190711
  Serious: Yes (Death, Other)
  Sender: FDA-Public Use
  Company Number: IN-GE HEALTHCARE LIFE SCIENCES-2019CSU001842

PATIENT

DRUGS (2)
  1. OMNIPAQUE [Suspect]
     Active Substance: IOHEXOL
     Indication: PRODUCT USED FOR UNKNOWN INDICATION
  2. OMNIPAQUE [Suspect]
     Active Substance: IOHEXOL
     Indication: ANGIOPLASTY
     Dosage: 140 ML, SINGLE
     Route: 042
     Dates: start: 20190322, end: 20190322

REACTIONS (1)
  - Death [Fatal]

NARRATIVE: CASE EVENT DATE: 20190323
